FAERS Safety Report 9219927 (Version 3)
Quarter: 2013Q2

REPORT INFORMATION
  Report Type: Report from Study
  Country: US (occurrence: US)
  Receive Date: 20130409
  Receipt Date: 20130510
  Transmission Date: 20140414
  Serious: Yes (Death, Life-Threatening, Hospitalization)
  Sender: FDA-Public Use
  Company Number: US-ACTELION-A-NJ2013-79520

PATIENT
  Age: 78 Year
  Sex: Female

DRUGS (2)
  1. VENTAVIS [Suspect]
     Indication: PULMONARY ARTERIAL HYPERTENSION
     Dosage: 5 UNK, UNK 6 X DAY
     Route: 055
     Dates: start: 201106, end: 20130423
  2. LASIX [Concomitant]

REACTIONS (5)
  - Sepsis [Fatal]
  - Hip fracture [Unknown]
  - Cardiac failure congestive [Unknown]
  - Dyspnoea [Unknown]
  - Drug dose omission [Recovering/Resolving]
